FAERS Safety Report 8900439 (Version 3)
Quarter: 2012Q4

REPORT INFORMATION
  Report Type: 
  Country: US (occurrence: US)
  Receive Date: 20121109
  Receipt Date: 20121221
  Transmission Date: 20130627
  Serious: Yes (Hospitalization)
  Sender: FDA-Public Use
  Company Number: US-009507513-1211USA002393

PATIENT
  Sex: Female

DRUGS (3)
  1. VICTRELIS [Suspect]
     Indication: HEPATITIS C
     Dosage: 4 DF, tid
     Route: 048
     Dates: start: 201208, end: 201211
  2. RIBAPAK [Suspect]
     Indication: HEPATITIS C
     Dosage: UNK
     Dates: end: 201211
  3. PEGASYS [Suspect]
     Indication: HEPATITIS C
     Dosage: UNK
     Dates: end: 201211

REACTIONS (2)
  - Hospitalisation [Unknown]
  - Adverse event [Unknown]
